FAERS Safety Report 8477594-2 (Version None)
Quarter: 2012Q2

REPORT INFORMATION
  Report Type: 
  Country: None (occurrence: None)
  Receive Date: 20120629
  Receipt Date: 20120620
  Transmission Date: 20120825
  Serious: Yes (Hospitalization)
  Sender: FDA-Public Use
  Company Number: US-ABBOTT-12P-163-0948025-00

PATIENT
  Sex: Male
  Weight: 68.554 kg

DRUGS (3)
  1. HUMIRA [Suspect]
     Indication: CROHN'S DISEASE
     Route: 058
     Dates: start: 20120510, end: 20120601
  2. IRON [Concomitant]
     Indication: PRODUCT USED FOR UNKNOWN INDICATION
     Route: 048
     Dates: start: 20120501
  3. HUMIRA [Suspect]
     Route: 058
     Dates: start: 20120616

REACTIONS (4)
  - INSOMNIA [None]
  - GASTROINTESTINAL OEDEMA [None]
  - INTESTINAL OBSTRUCTION [None]
  - ABDOMINAL PAIN [None]
